FAERS Safety Report 8015930-1 (Version None)
Quarter: 2011Q4

REPORT INFORMATION
  Report Type: 
  Country: None (occurrence: None)
  Receive Date: 20111230
  Receipt Date: 20111222
  Transmission Date: 20120403
  Serious: Yes (Hospitalization)
  Sender: FDA-Public Use
  Company Number: DE-ABBOTT-11P-062-0886546-00

PATIENT
  Age: 6 Year
  Sex: Female

DRUGS (1)
  1. VALPROATE SODIUM [Suspect]
     Indication: EPILEPSY
     Route: 048
     Dates: start: 20110611, end: 20110809

REACTIONS (4)
  - PANCREATITIS [None]
  - LIPASE INCREASED [None]
  - ABDOMINAL PAIN UPPER [None]
  - BLOOD AMYLASE INCREASED [None]
